FAERS Safety Report 13674371 (Version 2)
Quarter: 2017Q2

REPORT INFORMATION
  Report Type: Spontaneous
  Country: JP (occurrence: JP)
  Receive Date: 20170621
  Receipt Date: 20170629
  Transmission Date: 20170830
  Serious: Yes (Hospitalization, Other)
  Sender: FDA-Public Use
  Company Number: PHJP2017JP019695

PATIENT
  Age: 4 Year
  Sex: Male

DRUGS (2)
  1. EXJADE [Suspect]
     Active Substance: DEFERASIROX
     Indication: SIDEROBLASTIC ANAEMIA
     Dosage: 10 MG/KG, UNK
     Route: 065
  2. EXJADE [Suspect]
     Active Substance: DEFERASIROX
     Dosage: 20 MG/KG, UNK
     Route: 065
     Dates: end: 20170610

REACTIONS (7)
  - Abdominal pain [Recovered/Resolved]
  - Renal tubular disorder [Unknown]
  - Vomiting [Unknown]
  - Convulsion in childhood [Unknown]
  - Nausea [Unknown]
  - Pancreatitis [Recovering/Resolving]
  - Diarrhoea [Recovered/Resolved]

NARRATIVE: CASE EVENT DATE: 20170525
